FAERS Safety Report 6882325-3 (Version None)
Quarter: 2010Q3

REPORT INFORMATION
  Report Type: 
  Country: None (occurrence: None)
  Receive Date: 20100729
  Receipt Date: 20091030
  Transmission Date: 20110219
  Serious: No
  Sender: FDA-Public Use
  Company Number: US-MYLANLABS-2009S1019076

PATIENT
  Age: 52 Year
  Sex: Female

DRUGS (3)
  1. LEVOTHYROXINE SODIUM [Suspect]
     Indication: HYPOTHYROIDISM
     Route: 048
     Dates: start: 19940101, end: 20091025
  2. LEVOTHYROXINE SODIUM [Suspect]
     Route: 048
     Dates: start: 20091026
  3. SKELAXIN [Concomitant]
     Indication: MUSCLE SPASMS

REACTIONS (2)
  - MUSCULAR WEAKNESS [None]
  - NEUROPATHY PERIPHERAL [None]
